FAERS Safety Report 11942738 (Version 1)
Quarter: 2016Q1

REPORT INFORMATION
  Report Type: Spontaneous
  Country: US (occurrence: US)
  Receive Date: 20160125
  Receipt Date: 20160125
  Transmission Date: 20160526
  Serious: No
  Sender: FDA-Public Use
  Company Number: US-UNITED THERAPEUTICS-UNT-2015-007214

PATIENT
  Age: 38 Year
  Sex: Female
  Weight: 134.69 kg

DRUGS (4)
  1. ORENITRAM [Suspect]
     Active Substance: TREPROSTINIL
     Indication: PULMONARY ARTERIAL HYPERTENSION
     Dosage: 0.125 MG, Q8H
     Route: 048
     Dates: start: 20150603
  2. ORENITRAM [Suspect]
     Active Substance: TREPROSTINIL
     Dosage: 0.375 MG, TID
     Route: 048
  3. ADCIRCA [Concomitant]
     Active Substance: TADALAFIL
     Indication: PRODUCT USED FOR UNKNOWN INDICATION
  4. ORENITRAM [Suspect]
     Active Substance: TREPROSTINIL
     Dosage: 0.5 MG, TID
     Route: 048

REACTIONS (7)
  - Diarrhoea [Unknown]
  - Flushing [Unknown]
  - Vomiting [Unknown]
  - Arthralgia [Unknown]
  - Dyspepsia [Unknown]
  - Headache [Unknown]
  - Rash macular [Unknown]

NARRATIVE: CASE EVENT DATE: 2015
